FAERS Safety Report 18309435 (Version 7)
Quarter: 2022Q3

REPORT INFORMATION
  Report Type: Report from Study
  Country: CN (occurrence: CN)
  Receive Date: 20200924
  Receipt Date: 20220809
  Transmission Date: 20221027
  Serious: Yes (Hospitalization, Other)
  Sender: FDA-Public Use
  Company Number: CN-KARYOPHARM-2020KPT001130

PATIENT
  Age: 58 Year
  Sex: Female
  Weight: 56 kg

DRUGS (2)
  1. SELINEXOR [Suspect]
     Active Substance: SELINEXOR
     Indication: Plasma cell myeloma
     Dosage: 80 MG, 2X/WEEK
     Route: 048
     Dates: start: 20200731, end: 20200816
  2. DEXAMETHASONE [Suspect]
     Active Substance: DEXAMETHASONE
     Indication: Plasma cell myeloma
     Dosage: 20 MG, 2X/WEEK
     Route: 048
     Dates: start: 20200731, end: 20200823

REACTIONS (1)
  - Platelet count decreased [Unknown]

NARRATIVE: CASE EVENT DATE: 20200903
